FAERS Safety Report 20170099 (Version 1)
Quarter: 2021Q4

REPORT INFORMATION
  Report Type: Report from Study
  Country: IT (occurrence: IT)
  Receive Date: 20211210
  Receipt Date: 20211210
  Transmission Date: 20220304
  Serious: Yes (Hospitalization)
  Sender: FDA-Public Use
  Company Number: None

PATIENT
  Age: 60 Year
  Sex: Male

DRUGS (5)
  1. CLOZAPINE [Suspect]
     Active Substance: CLOZAPINE
     Indication: Paranoid personality disorder
     Dosage: 50 MG
     Route: 048
  2. OCREVUS [Suspect]
     Active Substance: OCRELIZUMAB
     Indication: Relapsing-remitting multiple sclerosis
     Dosage: 600 MG
     Route: 042
     Dates: start: 20210316, end: 20210316
  3. SILODOSIN [Concomitant]
     Active Substance: SILODOSIN
     Indication: Benign prostatic hyperplasia
     Dosage: 8 MG
     Route: 048
  4. CHOLECALCIFEROL [Concomitant]
     Active Substance: CHOLECALCIFEROL
     Dosage: BASE 100.000 I.U./ML INJECTABLE SOLUTION, 100000 KU
  5. PREGABALIN [Concomitant]
     Active Substance: PREGABALIN
     Dosage: 600 MG
     Route: 048

REACTIONS (9)
  - Gait inability [Recovering/Resolving]
  - Asthenia [Recovering/Resolving]
  - Soft tissue infection [Recovering/Resolving]
  - Dysarthria [Recovering/Resolving]
  - Hepatic fibrosis [Recovering/Resolving]
  - Sopor [Recovering/Resolving]
  - Azotaemia [Recovering/Resolving]
  - Hyperglycaemia [Recovering/Resolving]
  - Confusional state [Recovering/Resolving]

NARRATIVE: CASE EVENT DATE: 20210321
